FAERS Safety Report 15574071 (Version 1)
Quarter: 2018Q4

REPORT INFORMATION
  Report Type: Spontaneous
  Country: TR (occurrence: TR)
  Receive Date: 20181101
  Receipt Date: 20181101
  Transmission Date: 20190205
  Serious: Yes (Other)
  Sender: FDA-Public Use
  Company Number: TR-ACCORD-089815

PATIENT
  Age: 10 Year
  Sex: Female

DRUGS (2)
  1. EPIRUBICIN [Concomitant]
     Active Substance: EPIRUBICIN
     Indication: NONKERATINISING CARCINOMA OF NASOPHARYNX
  2. CISPLATIN. [Suspect]
     Active Substance: CISPLATIN
     Indication: NONKERATINISING CARCINOMA OF NASOPHARYNX

REACTIONS (6)
  - Vocal cord paresis [Unknown]
  - Peripheral sensory neuropathy [Unknown]
  - Febrile neutropenia [Unknown]
  - Peripheral motor neuropathy [Unknown]
  - Sepsis [Unknown]
  - Lymphoedema [Unknown]
